FAERS Safety Report 16798311 (Version 1)
Quarter: 2019Q3

REPORT INFORMATION
  Report Type: Spontaneous
  Country: US (occurrence: US)
  Receive Date: 20190912
  Receipt Date: 20190912
  Transmission Date: 20191005
  Serious: No
  Sender: FDA-Public Use
  Company Number: US-TEVA-2019-US-1106134

PATIENT
  Sex: Female

DRUGS (1)
  1. PREGABALIN 25MG [Suspect]
     Active Substance: PREGABALIN
     Indication: PAIN
     Route: 065

REACTIONS (4)
  - Pain [Unknown]
  - Oedema [Unknown]
  - Drug ineffective [Unknown]
  - Urine output [Unknown]
